FAERS Safety Report 19918449 (Version 4)
Quarter: 2022Q1

REPORT INFORMATION
  Report Type: Other
  Country: CN (occurrence: CN)
  Receive Date: 20211005
  Receipt Date: 20220314
  Transmission Date: 20220423
  Serious: Yes (Hospitalization)
  Sender: FDA-Public Use
  Company Number: CN-BLUEPRINT MEDICINES CORPORATION-SO-CN-2021-001763

PATIENT
  Age: 56 Year
  Sex: Male

DRUGS (3)
  1. GAVRETO [Suspect]
     Active Substance: PRALSETINIB
     Indication: Lung neoplasm malignant
     Route: 048
     Dates: start: 20210903
  2. GAVRETO [Suspect]
     Active Substance: PRALSETINIB
     Route: 048
     Dates: start: 2021
  3. GAVRETO [Suspect]
     Active Substance: PRALSETINIB
     Route: 048

REACTIONS (11)
  - Corneal perforation [Recovering/Resolving]
  - Blood test abnormal [Recovering/Resolving]
  - Pyrexia [Not Recovered/Not Resolved]
  - Transaminases increased [Recovering/Resolving]
  - Muscular weakness [Recovered/Resolved]
  - Hypoaesthesia [Not Recovered/Not Resolved]
  - Toothache [Recovered/Resolved]
  - Mouth ulceration [Not Recovered/Not Resolved]
  - Constipation [Recovered/Resolved]
  - Hypertension [Recovered/Resolved]
  - Asthenia [Not Recovered/Not Resolved]

NARRATIVE: CASE EVENT DATE: 20210909
